FAERS Safety Report 8066604-2 (Version None)
Quarter: 2012Q1

REPORT INFORMATION
  Report Type: 
  Country: None (occurrence: None)
  Receive Date: 20120124
  Receipt Date: 20120118
  Transmission Date: 20120608
  Serious: Yes (Other)
  Sender: FDA-Public Use
  Company Number: PHHY2010US83400

PATIENT
  Sex: Male

DRUGS (6)
  1. VITAMIN D [Concomitant]
     Dosage: 1000 IU, QD
  2. ULTRAM [Concomitant]
     Dosage: 200 MG, QD
  3. PRILOSEC [Concomitant]
     Dosage: 1 DF, QD
  4. MULTI-VITAMINS [Concomitant]
     Dosage: 1 DF, QD
  5. CLARITIN [Concomitant]
  6. EXTAVIA [Suspect]
     Indication: MULTIPLE SCLEROSIS
     Dosage: 0.25 MG, QOD
     Route: 058
     Dates: start: 20100317

REACTIONS (5)
  - SLEEP DISORDER [None]
  - EMOTIONAL DISORDER [None]
  - DRUG ADMINISTERED AT INAPPROPRIATE SITE [None]
  - INSOMNIA [None]
  - POLLAKIURIA [None]
